FAERS Safety Report 24231099 (Version 4)
Quarter: 2024Q4

REPORT INFORMATION
  Report Type: Spontaneous
  Country: US (occurrence: US)
  Receive Date: 20240821
  Receipt Date: 20241021
  Transmission Date: 20250115
  Serious: Yes (Hospitalization, Other)
  Sender: UCB
  Company Number: US-UCBSA-2024041195

PATIENT
  Sex: Male

DRUGS (2)
  1. RYSTIGGO [Suspect]
     Active Substance: ROZANOLIXIZUMAB-NOLI
     Indication: Myasthenia gravis
     Dosage: 560 MILLIGRAM, WEEKLY (QW) ONCE WEEKLY FOR 6 WEEKS
     Route: 058
     Dates: start: 20240731
  2. EPINEPHRINE [Concomitant]
     Active Substance: EPINEPHRINE
     Indication: Product used for unknown indication

REACTIONS (7)
  - Prostate infection [Unknown]
  - Prostatic operation [Recovering/Resolving]
  - Renal disorder [Unknown]
  - Diarrhoea [Not Recovered/Not Resolved]
  - Eye disorder [Not Recovered/Not Resolved]
  - Arthralgia [Not Recovered/Not Resolved]
  - Eyelid ptosis [Recovering/Resolving]

NARRATIVE: CASE EVENT DATE: 20240101
